FAERS Safety Report 15225482 (Version 1)
Quarter: 2018Q3

REPORT INFORMATION
  Report Type: Spontaneous
  Country: GB (occurrence: GB)
  Receive Date: 20180801
  Receipt Date: 20180801
  Transmission Date: 20181010
  Serious: Yes (Death, Other)
  Sender: FDA-Public Use
  Company Number: GB-STRIDES ARCOLAB LIMITED-2018SP006415

PATIENT

DRUGS (6)
  1. TACROLIMUS. [Suspect]
     Active Substance: TACROLIMUS
     Indication: SOLID ORGAN TRANSPLANT
     Dosage: UNK
     Route: 065
  2. METHYLPREDNISOLONE. [Suspect]
     Active Substance: METHYLPREDNISOLONE
     Indication: SOLID ORGAN TRANSPLANT
     Dosage: UNK
     Route: 065
  3. GANCICLOVIR. [Concomitant]
     Active Substance: GANCICLOVIR
     Indication: CYTOMEGALOVIRUS VIRAEMIA
     Dosage: UNK
     Route: 065
  4. CIDOFOVIR. [Concomitant]
     Active Substance: CIDOFOVIR
     Indication: CYTOMEGALOVIRUS VIRAEMIA
     Dosage: UNK
     Route: 065
  5. ALEMTUZUMAB [Suspect]
     Active Substance: ALEMTUZUMAB
     Indication: SOLID ORGAN TRANSPLANT
     Dosage: UNK
     Route: 065
  6. FOSCARNET [Concomitant]
     Active Substance: FOSCARNET
     Indication: CYTOMEGALOVIRUS VIRAEMIA
     Dosage: UNK
     Route: 065

REACTIONS (6)
  - Off label use [Unknown]
  - Graft versus host disease [Unknown]
  - Rash maculo-papular [Unknown]
  - Multiple organ dysfunction syndrome [Fatal]
  - Pancytopenia [Unknown]
  - Sepsis [Unknown]
